FAERS Safety Report 23218054 (Version 1)
Quarter: 2023Q4

REPORT INFORMATION
  Report Type: Spontaneous
  Country: US (occurrence: US)
  Receive Date: 20231122
  Receipt Date: 20231122
  Transmission Date: 20240110
  Serious: Yes (Other)
  Sender: FDA-Public Use
  Company Number: US-MYLANLABS-2023M1124046

PATIENT
  Age: 69 Year
  Sex: Male

DRUGS (1)
  1. IMATINIB [Suspect]
     Active Substance: IMATINIB
     Indication: Chronic myeloid leukaemia
     Dosage: UNK
     Route: 065

REACTIONS (4)
  - Hypocalcaemia [Recovering/Resolving]
  - Cytogenetic abnormality [Recovering/Resolving]
  - Tetany [Recovered/Resolved]
  - Unmasking of previously unidentified disease [Recovering/Resolving]
